FAERS Safety Report 13519700 (Version 3)
Quarter: 2019Q2

REPORT INFORMATION
  Report Type: Spontaneous
  Country: US (occurrence: US)
  Receive Date: 20170505
  Receipt Date: 20190415
  Transmission Date: 20190711
  Serious: No
  Sender: FDA-Public Use
  Company Number: PHEH2017US012901

PATIENT
  Sex: Male

DRUGS (2)
  1. EXFORGE [Suspect]
     Active Substance: AMLODIPINE BESYLATE\VALSARTAN
     Indication: PRODUCT USED FOR UNKNOWN INDICATION
     Route: 065
  2. VALSARTAN, AMLODIPINE [Suspect]
     Active Substance: AMLODIPINE\VALSARTAN
     Indication: PRODUCT USED FOR UNKNOWN INDICATION
     Route: 065

REACTIONS (9)
  - Insomnia [Unknown]
  - Drug ineffective [Unknown]
  - Hyperhidrosis [Unknown]
  - Fatigue [Unknown]
  - Product packaging issue [Unknown]
  - Flatulence [Unknown]
  - Hypertension [Unknown]
  - Irritability [Unknown]
  - Restlessness [Unknown]
